FAERS Safety Report 11414607 (Version 3)
Quarter: 2015Q3

REPORT INFORMATION
  Report Type: Spontaneous
  Country: US (occurrence: None)
  Receive Date: 20150821
  Receipt Date: 20150909
  Transmission Date: 20151125
  Serious: Yes (Hospitalization, Other)
  Sender: FDA-Public Use
  Company Number: ADR-2015-01578

PATIENT
  Age: 35 Year
  Sex: Male

DRUGS (2)
  1. LIORESAL [Suspect]
     Active Substance: BACLOFEN
     Indication: MUSCLE SPASTICITY
     Dosage: 369.2 MCG/DAY
  2. BACLOFEN INTRATHECAL [Suspect]
     Active Substance: BACLOFEN
     Dosage: UNK

REACTIONS (12)
  - Therapeutic response unexpected [None]
  - Hyperaesthesia [None]
  - Hyperhidrosis [None]
  - Muscle spasticity [None]
  - Formication [None]
  - Pruritus [None]
  - Nausea [None]
  - Muscle tightness [None]
  - Asthenia [None]
  - Vomiting [None]
  - Tremor [None]
  - Muscle spasms [None]
